FAERS Safety Report 4906311-5 (Version None)
Quarter: 2006Q1

REPORT INFORMATION
  Report Type: 
  Country: None (occurrence: None)
  Receive Date: 20060209
  Receipt Date: 20060202
  Transmission Date: 20060701
  Serious: Yes (Other)
  Sender: FDA-Public Use
  Company Number: PHRM2006FR00709

PATIENT
  Age: 75 Year
  Sex: Male

DRUGS (5)
  1. WYTENS /SPA/ [Concomitant]
     Route: 048
  2. BEFIZAL [Concomitant]
  3. ALLOPURINOL [Concomitant]
     Route: 048
  4. XANAX [Concomitant]
     Route: 048
  5. TAREG [Suspect]
     Indication: HYPERTENSION
     Dosage: 160 MG, QD
     Route: 048

REACTIONS (1)
  - ECZEMA [None]
